FAERS Safety Report 14441899 (Version 1)
Quarter: 2018Q1

REPORT INFORMATION
  Report Type: Report from Study
  Country: US (occurrence: US)
  Receive Date: 20180125
  Receipt Date: 20180125
  Transmission Date: 20180509
  Serious: No
  Sender: FDA-Public Use
  Company Number: US-AMGEN-USASL2017186937

PATIENT
  Age: 58 Year
  Sex: Female
  Weight: 73.47 kg

DRUGS (11)
  1. CHOLEST-OFF [Concomitant]
     Active Substance: DIETARY SUPPLEMENT
     Dosage: 450 MG
     Route: 048
  2. CRESTOR [Concomitant]
     Active Substance: ROSUVASTATIN CALCIUM
     Dosage: 5 MG, QD
     Route: 048
     Dates: start: 20170113
  3. KRILL OIL [Concomitant]
     Active Substance: DIETARY SUPPLEMENT
     Dosage: 1,000-70-80-50 MG
     Route: 048
  4. ONDANSETRON [Concomitant]
     Active Substance: ONDANSETRON
     Dosage: 4 MG, Q4H
     Route: 048
     Dates: start: 20170421
  5. BIOTIN [Concomitant]
     Active Substance: BIOTIN
     Route: 048
  6. NEOMYCIN POLYMIXIN [Concomitant]
     Active Substance: NEOMYCIN\POLYMYXIN
     Dosage: 3.5-10,000-1 MG/ML, TID
     Route: 001
     Dates: start: 20170421
  7. ASPIRIN. [Concomitant]
     Active Substance: ASPIRIN
     Dosage: 81 MG
     Route: 048
  8. MULTIVITAMIN [Concomitant]
     Active Substance: VITAMINS
     Dosage: UNK UNK, QD
     Route: 048
  9. VITAMIN D3 [Concomitant]
     Active Substance: CHOLECALCIFEROL
     Dosage: 1,000
     Route: 048
  10. REPATHA [Suspect]
     Active Substance: EVOLOCUMAB
     Indication: HYPERCHOLESTEROLAEMIA
     Dosage: 420 MG/3.5 ML QMO
     Route: 058
     Dates: start: 20170316
  11. COENZYME Q10 [Concomitant]
     Active Substance: UBIDECARENONE
     Dosage: 230 MG, QD
     Route: 048

REACTIONS (1)
  - Therapeutic response unexpected [Unknown]
